FAERS Safety Report 16011664 (Version 2)
Quarter: 2019Q2

REPORT INFORMATION
  Report Type: Spontaneous
  Country: US (occurrence: US)
  Receive Date: 20190227
  Receipt Date: 20190403
  Transmission Date: 20190711
  Serious: No
  Sender: FDA-Public Use
  Company Number: US-PFIZER INC-2019083087

PATIENT
  Age: 50 Year
  Sex: Male

DRUGS (1)
  1. EUCRISA [Suspect]
     Active Substance: CRISABOROLE
     Dosage: UNK, 2X/DAY; [APPLY A THIN FILM TWICE A DAY TO AFFECTED AREAS]
     Dates: start: 201812

REACTIONS (1)
  - Drug ineffective [Unknown]
